FAERS Safety Report 6067275-7 (Version None)
Quarter: 2009Q1

REPORT INFORMATION
  Report Type: 
  Country: None (occurrence: None)
  Receive Date: 20090203
  Receipt Date: 20090129
  Transmission Date: 20090719
  Serious: Yes (Other)
  Sender: FDA-Public Use
  Company Number: A0765854A

PATIENT
  Age: 54 Year
  Sex: Female

DRUGS (1)
  1. SODIUM FLUORIDE + POTASSIUM NITRATE (FORMULATION UNKNOWN) (SODIUM FLUO [Suspect]
     Indication: DENTAL CARE
     Dosage: DENTAL
     Route: 004

REACTIONS (4)
  - ACCIDENTAL EXPOSURE [None]
  - CORNEAL ABRASION [None]
  - EYE BURNS [None]
  - INCORRECT ROUTE OF DRUG ADMINISTRATION [None]
